FAERS Safety Report 17279378 (Version 1)
Quarter: 2020Q1

REPORT INFORMATION
  Report Type: Spontaneous
  Country: US (occurrence: US)
  Receive Date: 20200116
  Receipt Date: 20200116
  Transmission Date: 20200409
  Serious: Yes (Other)
  Sender: FDA-Public Use
  Company Number: US-NOVOPROD-706246

PATIENT
  Sex: Female

DRUGS (1)
  1. VICTOZA [Suspect]
     Active Substance: LIRAGLUTIDE
     Indication: WEIGHT DECREASED
     Dosage: UNK
     Route: 058
     Dates: start: 2019, end: 20191227

REACTIONS (4)
  - Blood glucose increased [Not Recovered/Not Resolved]
  - Off label use [Recovered/Resolved]
  - Diabetes mellitus [Not Recovered/Not Resolved]
  - Abdominoplasty [Unknown]

NARRATIVE: CASE EVENT DATE: 2019
